FAERS Safety Report 12190750 (Version 1)
Quarter: 2016Q1

REPORT INFORMATION
  Report Type: Spontaneous
  Country: US (occurrence: None)
  Receive Date: 20160317
  Receipt Date: 20160317
  Transmission Date: 20160526
  Serious: No
  Sender: FDA-Public Use
  Company Number: None

PATIENT
  Age: 59 Year
  Sex: Male
  Weight: 66.4 kg

DRUGS (1)
  1. GABAPENTIN. [Suspect]
     Active Substance: GABAPENTIN
     Route: 048
     Dates: start: 20110602, end: 20130101

REACTIONS (3)
  - Cognitive disorder [None]
  - Dissociative disorder [None]
  - Dizziness [None]

NARRATIVE: CASE EVENT DATE: 20121212
